FAERS Safety Report 5848748-6 (Version None)
Quarter: 2008Q3

REPORT INFORMATION
  Report Type: 
  Country: None (occurrence: None)
  Receive Date: 20080818
  Receipt Date: 20080814
  Transmission Date: 20090109
  Serious: Yes (Other)
  Sender: FDA-Public Use
  Company Number: US-BOEHRINGER INGELHEIM GMBH, GERMANY-2008-BP-12851BP

PATIENT

DRUGS (2)
  1. CATAPRES [Suspect]
     Route: 048
  2. METHADONE HCL [Suspect]

REACTIONS (2)
  - DRUG ABUSE [None]
  - POTENTIATING DRUG INTERACTION [None]
